FAERS Safety Report 5609275-4 (Version None)
Quarter: 2008Q1

REPORT INFORMATION
  Report Type: 
  Country: None (occurrence: None)
  Receive Date: 20080131
  Receipt Date: 20080122
  Transmission Date: 20080703
  Serious: Yes (Disabling)
  Sender: FDA-Public Use
  Company Number: JP-JNJFOC-20080103896

PATIENT

DRUGS (10)
  1. RISPERDAL [Suspect]
     Indication: AGGRESSION
     Route: 048
  2. RISPERDAL [Suspect]
     Indication: SOLILOQUY
     Route: 048
  3. RISPERDAL [Suspect]
     Indication: AGGRESSION
     Route: 048
  4. RISPERDAL [Suspect]
     Indication: SOLILOQUY
     Route: 048
  5. PAROXETINE [Concomitant]
     Route: 048
  6. NIFEDIPINE [Concomitant]
     Route: 048
  7. LANSOPRAZOLE [Concomitant]
     Route: 048
  8. WARFARIN SODIUM [Concomitant]
     Route: 048
  9. REBAMIPIDE [Concomitant]
     Route: 048
  10. ETIZOLAM [Concomitant]
     Route: 048

REACTIONS (2)
  - ACTIVITIES OF DAILY LIVING IMPAIRED [None]
  - DYSKINESIA [None]
